FAERS Safety Report 5907866-4 (Version None)
Quarter: 2008Q4

REPORT INFORMATION
  Report Type: 
  Country: None (occurrence: None)
  Receive Date: 20081003
  Receipt Date: 20080923
  Transmission Date: 20090506
  Serious: Yes (Life-Threatening, Hospitalization)
  Sender: FDA-Public Use
  Company Number: DE-PFIZER INC-2008048754

PATIENT
  Sex: Male
  Weight: 70 kg

DRUGS (8)
  1. EXUBERA [Suspect]
     Indication: TYPE 2 DIABETES MELLITUS
     Route: 055
     Dates: start: 20061018
  2. FUROSEMID [Concomitant]
     Route: 048
  3. CLONISTADA [Concomitant]
     Route: 048
  4. MOXONIDINE [Concomitant]
     Route: 048
  5. AMLODIPINE [Concomitant]
     Route: 048
  6. CALCIUM CARBONATE [Concomitant]
     Route: 048
  7. NEXIUM [Concomitant]
     Route: 048
  8. VITAMIN A+D [Concomitant]
     Route: 048

REACTIONS (1)
  - RENAL FAILURE CHRONIC [None]
